FAERS Safety Report 4679342-0 (Version None)
Quarter: 2005Q2

REPORT INFORMATION
  Report Type: 
  Country: None (occurrence: None)
  Receive Date: 20050602
  Receipt Date: 20050318
  Transmission Date: 20051028
  Serious: Yes (Death)
  Sender: FDA-Public Use
  Company Number: PHNU2005SI01406

PATIENT
  Age: 84 Year

DRUGS (8)
  1. TOLVON [Concomitant]
  2. EXELON [Suspect]
     Indication: DEMENTIA ALZHEIMER'S TYPE
     Dosage: 6 MG, BID
     Route: 048
     Dates: start: 20040302
  3. COAXIL [Concomitant]
     Dosage: 12.5 MG, BID
  4. FOSAMAX [Concomitant]
     Dosage: WEEKLY
  5. PLIVIT D3 [Concomitant]
  6. AMLOPIN [Concomitant]
  7. TRITACE [Concomitant]
  8. TERTENSIF [Concomitant]

REACTIONS (1)
  - DEATH [None]
